FAERS Safety Report 20606062 (Version 1)
Quarter: 2022Q1

REPORT INFORMATION
  Report Type: Spontaneous
  Country: US (occurrence: US)
  Receive Date: 20220317
  Receipt Date: 20220317
  Transmission Date: 20220423
  Serious: Yes (Other)
  Sender: FDA-Public Use
  Company Number: US-STRIDES ARCOLAB LIMITED-2022SP001214

PATIENT
  Sex: Female

DRUGS (10)
  1. CETIRIZINE [Suspect]
     Active Substance: CETIRIZINE HYDROCHLORIDE
     Indication: Pruritus
     Dosage: 10 MILLIGRAM, EVERY MORNING
     Route: 048
  2. HYDROXYZINE HYDROCHLORIDE [Suspect]
     Active Substance: HYDROXYZINE HYDROCHLORIDE
     Indication: Pruritus
     Dosage: 25 MILLIGRAM (AS NEEDED AT NIGHT)
     Route: 048
  3. TRIAMCINOLONE ACETONIDE [Suspect]
     Active Substance: TRIAMCINOLONE ACETONIDE
     Indication: Eczema
     Dosage: UNK
     Route: 065
  4. CAMPHOR\MENTHOL [Suspect]
     Active Substance: CAMPHOR\MENTHOL
     Indication: Pruritus
     Dosage: UNK
     Route: 065
  5. CAMPHOR\MENTHOL [Suspect]
     Active Substance: CAMPHOR\MENTHOL
     Indication: Eczema
     Dosage: UNK, PRN (AS NEEDED)
     Route: 065
  6. CLOBETASOL [Suspect]
     Active Substance: CLOBETASOL
     Indication: Psoriasis
     Dosage: UNK
     Route: 061
  7. CLOBETASOL [Suspect]
     Active Substance: CLOBETASOL
     Indication: Eczema
     Dosage: UNK, BID (APPLICATION UNDER OCCLUSION WITH A COTTON GLOVE)
     Route: 061
  8. CLOBETASOL [Suspect]
     Active Substance: CLOBETASOL
     Dosage: UNK, BID (TWICE DAILY TO THE HANDS)
     Route: 065
  9. UREA [Suspect]
     Active Substance: UREA
     Indication: Eczema
     Dosage: UNK
     Route: 065
  10. BACITRACIN [Suspect]
     Active Substance: BACITRACIN
     Indication: Eczema
     Dosage: UNK
     Route: 065

REACTIONS (3)
  - Therapy partial responder [Unknown]
  - Drug ineffective [Unknown]
  - Off label use [Unknown]
